FAERS Safety Report 8345943-1 (Version None)
Quarter: 2012Q2

REPORT INFORMATION
  Report Type: 
  Country: None (occurrence: None)
  Receive Date: 20120507
  Receipt Date: 20120423
  Transmission Date: 20120825
  Serious: Yes (Hospitalization, Other)
  Sender: FDA-Public Use
  Company Number: CIP11002975

PATIENT
  Age: 64 Year
  Sex: Female

DRUGS (11)
  1. ALENDRONATE SODIUM [Suspect]
     Indication: OSTEOPENIA
     Dosage: 70 MG, 1/WEEK, ORAL
     Route: 048
     Dates: start: 20080530, end: 20091101
  2. MULTIVITAMIN /00097801/ (ASCORBIC ACID, CALCIUM PANTOTHENATE, ERGOCALC [Concomitant]
  3. AMITRIPTYLINE HCL [Concomitant]
  4. ENALAPRIL MALEATE [Concomitant]
  5. FOSAMAX [Suspect]
     Indication: OSTEOPENIA
     Dosage: 70 MG, 1/WEEK, ORAL, 70 MG, 1/WEEK, ORAL
     Route: 048
     Dates: start: 20051205, end: 20071201
  6. FOSAMAX [Suspect]
     Indication: OSTEOPENIA
     Dosage: 70 MG, 1/WEEK, ORAL, 70 MG, 1/WEEK, ORAL
     Route: 048
     Dates: start: 20040303, end: 20041201
  7. CALCIUM CARBONATE [Concomitant]
  8. VITAMIN D [Concomitant]
  9. ACTONEL [Suspect]
     Dosage: 35 MG ONCE WEEKLY, ORAL
     Route: 048
     Dates: start: 20020716, end: 20031024
  10. ZYRTEC [Concomitant]
  11. SIMVASTATIN [Concomitant]

REACTIONS (17)
  - STRESS FRACTURE [None]
  - OSTEONECROSIS OF JAW [None]
  - FEMUR FRACTURE [None]
  - LOW TURNOVER OSTEOPATHY [None]
  - FALL [None]
  - MUSCULOSKELETAL PAIN [None]
  - FRACTURE NONUNION [None]
  - BACK PAIN [None]
  - BONE PAIN [None]
  - PUBIS FRACTURE [None]
  - INTERVERTEBRAL DISC SPACE NARROWING [None]
  - HYPOAESTHESIA [None]
  - OSTEOPENIA [None]
  - BONE DISORDER [None]
  - ARTHRALGIA [None]
  - NERVE ROOT LESION [None]
  - PATHOLOGICAL FRACTURE [None]
